FAERS Safety Report 7328005-1 (Version None)
Quarter: 2011Q1

REPORT INFORMATION
  Report Type: 
  Country: None (occurrence: None)
  Receive Date: 20110303
  Receipt Date: 20110222
  Transmission Date: 20110831
  Serious: Yes (Other)
  Sender: FDA-Public Use
  Company Number: CA-JNJFOC-20110207861

PATIENT
  Sex: Male
  Weight: 96.01 kg

DRUGS (2)
  1. REMICADE [Suspect]
     Indication: ANKYLOSING SPONDYLITIS
     Dosage: 100 MG/VIAL
     Route: 042
  2. CELEBREX [Concomitant]
     Route: 065

REACTIONS (3)
  - TACHYARRHYTHMIA [None]
  - DIZZINESS [None]
  - FLUSHING [None]
